FAERS Safety Report 24041908 (Version 1)
Quarter: 2024Q3

REPORT INFORMATION
  Report Type: Spontaneous
  Country: US (occurrence: US)
  Receive Date: 20240702
  Receipt Date: 20240702
  Transmission Date: 20241016
  Serious: Yes (Hospitalization, Other)
  Sender: LUPIN
  Company Number: US-LUPIN PHARMACEUTICALS INC.-2024-05628

PATIENT
  Age: 41 Year
  Sex: Female

DRUGS (2)
  1. METOPROLOL [Suspect]
     Active Substance: METOPROLOL
     Indication: Pulmonary hypertension
     Dosage: 100 MG
     Route: 048
  2. GLUCAGON [Concomitant]
     Active Substance: GLUCAGON\GLUCAGON HYDROCHLORIDE\WATER
     Indication: Heart rate decreased
     Dosage: UNK
     Route: 065

REACTIONS (1)
  - Cardiogenic shock [Recovering/Resolving]
